FAERS Safety Report 7319694-6 (Version None)
Quarter: 2011Q1

REPORT INFORMATION
  Report Type: 
  Country: None (occurrence: None)
  Receive Date: 20110228
  Receipt Date: 20100803
  Transmission Date: 20110831
  Serious: No
  Sender: FDA-Public Use
  Company Number: A0873773A

PATIENT
  Age: 46 Year
  Sex: Male

DRUGS (3)
  1. LAMICTAL [Suspect]
     Route: 048
     Dates: start: 20040101, end: 20040101
  2. LAMOTRIGINE [Suspect]
     Dosage: 25MG PER DAY
     Route: 048
     Dates: start: 20100731
  3. CITRUCEL [Concomitant]

REACTIONS (2)
  - ABNORMAL DREAMS [None]
  - ABDOMINAL PAIN [None]
